FAERS Safety Report 6897659-6 (Version None)
Quarter: 2010Q3

REPORT INFORMATION
  Report Type: 
  Country: None (occurrence: None)
  Receive Date: 20100802
  Receipt Date: 20070629
  Transmission Date: 20110219
  Serious: Yes (Other)
  Sender: FDA-Public Use
  Company Number: US-PFIZER INC-2007054203

PATIENT
  Sex: Female
  Weight: 79.545 kg

DRUGS (7)
  1. LYRICA [Suspect]
     Indication: FIBROMYALGIA
     Dates: start: 20070623
  2. KLONOPIN [Interacting]
     Indication: RESTLESS LEGS SYNDROME
     Dates: end: 20070601
  3. MOBIC [Concomitant]
  4. LEXAPRO [Concomitant]
  5. PREVACID [Concomitant]
  6. VALSARTAN [Concomitant]
  7. LEVSIN [Concomitant]

REACTIONS (7)
  - DISORIENTATION [None]
  - DRUG INTERACTION [None]
  - INSOMNIA [None]
  - IRRITABLE BOWEL SYNDROME [None]
  - PARAESTHESIA [None]
  - SOMNOLENCE [None]
  - THROAT TIGHTNESS [None]
